FAERS Safety Report 17581774 (Version 2)
Quarter: 2020Q2

REPORT INFORMATION
  Report Type: Spontaneous
  Country: US (occurrence: US)
  Receive Date: 20200325
  Receipt Date: 20200415
  Transmission Date: 20200713
  Serious: Yes (Other)
  Sender: FDA-Public Use
  Company Number: US-JNJFOC-20200321886

PATIENT
  Age: 77 Year
  Sex: Male

DRUGS (3)
  1. LOCAL HAEMOSTATICS [Concomitant]
     Active Substance: UNSPECIFIED INGREDIENT
     Indication: PRODUCT USE IN UNAPPROVED INDICATION
     Route: 065
  2. EVITHROM [Suspect]
     Active Substance: THROMBIN HUMAN
     Indication: NEUROSURGERY
     Route: 061
  3. ASPIRIN. [Concomitant]
     Active Substance: ASPIRIN

REACTIONS (2)
  - Dyspnoea [Recovered/Resolved]
  - Haematoma [Recovered/Resolved]
